FAERS Safety Report 4461358-0 (Version None)
Quarter: 2004Q3

REPORT INFORMATION
  Report Type: 
  Country: None (occurrence: None)
  Receive Date: 20040928
  Receipt Date: 20040722
  Transmission Date: 20050211
  Serious: Yes (Life-Threatening, Hospitalization)
  Sender: FDA-Public Use
  Company Number: GB-BRISTOL-MYERS SQUIBB COMPANY-12649356

PATIENT
  Age: 45 Year
  Sex: Male

DRUGS (5)
  1. ABILIFY [Suspect]
     Indication: SCHIZOPHRENIA
     Route: 048
     Dates: start: 20040629, end: 20040723
  2. CIPRAMIL [Concomitant]
     Indication: DEPRESSION
     Route: 048
     Dates: start: 20040310, end: 20040629
  3. ARTHROTEC [Concomitant]
     Indication: OSTEOARTHRITIS
     Route: 048
     Dates: start: 20040310, end: 20040629
  4. CLOPIXOL [Concomitant]
     Indication: SCHIZOPHRENIA
     Route: 030
     Dates: start: 20040310, end: 20040629
  5. KEMADRIN [Concomitant]
     Indication: EXTRAPYRAMIDAL DISORDER
     Route: 048
     Dates: start: 20040310, end: 20040629

REACTIONS (4)
  - DIZZINESS [None]
  - HEART RATE IRREGULAR [None]
  - PALPITATIONS [None]
  - SUPRAVENTRICULAR TACHYCARDIA [None]
